FAERS Safety Report 10354453 (Version 1)
Quarter: 2014Q3

REPORT INFORMATION
  Report Type: Spontaneous
  Country: CO (occurrence: None)
  Receive Date: 20140729
  Receipt Date: 20140729
  Transmission Date: 20150326
  Serious: Yes (Other)
  Sender: FDA-Public Use
  Company Number: 2014-20057

PATIENT
  Age: 82 Year
  Sex: Female

DRUGS (3)
  1. EYLEA [Suspect]
     Active Substance: AFLIBERCEPT
     Indication: AGE-RELATED MACULAR DEGENERATION
     Route: 031
     Dates: start: 201310, end: 201310
  2. CALCIUM (CALCIUM) [Suspect]
     Active Substance: CALCIUM
  3. VITAMIN D (COLECALCIFEROL) [Concomitant]

REACTIONS (2)
  - Skin infection [None]
  - Eye infection [None]

NARRATIVE: CASE EVENT DATE: 201310
